FAERS Safety Report 6896183-4 (Version None)
Quarter: 2010Q3

REPORT INFORMATION
  Report Type: 
  Country: None (occurrence: None)
  Receive Date: 20100802
  Receipt Date: 20100722
  Transmission Date: 20110219
  Serious: Yes (Death, Hospitalization)
  Sender: FDA-Public Use
  Company Number: A0867515A

PATIENT
  Sex: Male
  Weight: 57.3 kg

DRUGS (7)
  1. AVANDIA [Suspect]
  2. GLYBURIDE [Concomitant]
  3. PRANDIN [Concomitant]
  4. LIPITOR [Concomitant]
  5. EPOGEN [Concomitant]
  6. COMBIVENT [Concomitant]
  7. ACIPHEX [Concomitant]

REACTIONS (6)
  - CHRONIC OBSTRUCTIVE PULMONARY DISEASE [None]
  - INTESTINAL ISCHAEMIA [None]
  - MULTI-ORGAN FAILURE [None]
  - RENAL FAILURE CHRONIC [None]
  - RESPIRATORY FAILURE [None]
  - SEPSIS [None]
